FAERS Safety Report 11167681 (Version 1)
Quarter: 2015Q2

REPORT INFORMATION
  Report Type: Spontaneous
  Country: US (occurrence: US)
  Receive Date: 20150605
  Receipt Date: 20150605
  Transmission Date: 20150821
  Serious: Yes (Other)
  Sender: FDA-Public Use
  Company Number: US-PFIZER INC-2015185124

PATIENT
  Age: 66 Year
  Sex: Male

DRUGS (13)
  1. HYOSCYAMINE [Concomitant]
     Active Substance: HYOSCYAMINE
     Dosage: 0.375 MG, 2X/DAY (12 HR ORALLY TWICE A DAY)
     Route: 048
  2. ASPIRIN. [Concomitant]
     Active Substance: ASPIRIN
     Dosage: 81 MG, 1X/DAY (TAKE 1 TABLET, CHEWABLE ORALLY EVERY DAY
  3. NOVOLOG [Suspect]
     Active Substance: INSULIN ASPART
     Dosage: UNK (100 UNIT/ML) (TAKE 10 UNIT SUBCUTANEOUSLY)
     Route: 058
  4. LEVEMIR [Suspect]
     Active Substance: INSULIN DETEMIR
     Dosage: UNK (100 UNIT/ML (3 ML) SOLUTION) (TAKE 90 U INSULIN)
     Route: 058
     Dates: start: 20141003
  5. LYRICA [Suspect]
     Active Substance: PREGABALIN
     Dosage: 75 MG, 1X/DAY (AT BEDTIME)
     Route: 048
     Dates: start: 20150123
  6. COLACE [Concomitant]
     Active Substance: DOCUSATE SODIUM
     Dosage: 50 MG, 1X/DAY
     Route: 048
  7. LIDOCAINE. [Concomitant]
     Active Substance: LIDOCAINE
     Dosage: 5 %, UNK (700 MG/PATCH) (EVERY DAY PRN 12 HRS ON/ 12 HRS OFF)
     Route: 061
     Dates: start: 20150310
  8. DOMEBORO [Suspect]
     Active Substance: ALUMINUM ACETATE
     Dosage: UNK UNK, 4X/DAY (TOPICALLY 4 TIMES A DAY PRN)
     Route: 061
  9. VALTREX [Suspect]
     Active Substance: VALACYCLOVIR HYDROCHLORIDE
     Dosage: 1 UNK, UNK (1 GRAM)
     Route: 048
     Dates: start: 20150303
  10. TRAMADOL [Suspect]
     Active Substance: TRAMADOL
     Dosage: 50 MG, 3X/DAY (THREE TIMES A DAY PRN)
     Route: 048
     Dates: start: 20150227
  11. GENERLAC [Suspect]
     Active Substance: LACTULOSE
     Dosage: UNK (10 GRAM/15 ML) (TAKE 2 TSP SOLUTION, ORAL ORALLY EVERY DAY)
     Route: 048
     Dates: start: 20140821
  12. LASIX [Concomitant]
     Active Substance: FUROSEMIDE
     Dosage: 20 MG, 1X/DAY
     Route: 048
  13. RAMIPRIL. [Concomitant]
     Active Substance: RAMIPRIL
     Dosage: 10 MG, 1X/DAY
     Route: 048
     Dates: start: 20150312

REACTIONS (3)
  - Hypertension [Unknown]
  - Herpes zoster infection neurological [Unknown]
  - Back pain [Unknown]

NARRATIVE: CASE EVENT DATE: 20150310
